APPROVED DRUG PRODUCT: EFINACONAZOLE
Active Ingredient: EFINACONAZOLE
Strength: 10%
Dosage Form/Route: SOLUTION;TOPICAL
Application: A212178 | Product #001
Applicant: ZYDUS LIFESCIENCES GLOBAL FZE
Approved: Jul 15, 2022 | RLD: No | RS: No | Type: DISCN